FAERS Safety Report 7008585-6 (Version None)
Quarter: 2010Q3

REPORT INFORMATION
  Report Type: 
  Country: None (occurrence: None)
  Receive Date: 20100922
  Receipt Date: 20100908
  Transmission Date: 20110219
  Serious: Yes (Life-Threatening, Hospitalization)
  Sender: FDA-Public Use
  Company Number: US-WATSON-2010-12562

PATIENT
  Age: 63 Year
  Sex: Female

DRUGS (2)
  1. SOTALOL (WATSON LABORATORIES) [Suspect]
     Indication: ATRIAL FIBRILLATION
     Dosage: 80 MG, BID
  2. OSELTAMIVIR [Suspect]
     Indication: INFLUENZA
     Dosage: 75 MG, BID

REACTIONS (2)
  - DRUG INTERACTION [None]
  - TORSADE DE POINTES [None]
